FAERS Safety Report 4689150-2 (Version None)
Quarter: 2005Q2

REPORT INFORMATION
  Report Type: 
  Country: None (occurrence: None)
  Receive Date: 20050613
  Receipt Date: 20050202
  Transmission Date: 20051028
  Serious: Yes (Other)
  Sender: FDA-Public Use
  Company Number: PHNU2005DE00773

PATIENT
  Sex: Female

DRUGS (2)
  1. ZOMETA [Suspect]
     Indication: CERVIX CARCINOMA
     Dosage: 1 DF, QW
     Route: 042
  2. AREDIA [Suspect]
     Indication: CERVIX CARCINOMA
     Route: 042
     Dates: end: 20050301

REACTIONS (5)
  - FISTULA [None]
  - OSTEONECROSIS [None]
  - PRIMARY SEQUESTRUM [None]
  - TOOTH EXTRACTION [None]
  - WOUND DEBRIDEMENT [None]
